FAERS Safety Report 19650217 (Version 1)
Quarter: 2021Q3

REPORT INFORMATION
  Report Type: Spontaneous
  Country: US (occurrence: US)
  Receive Date: 20210802
  Receipt Date: 20210802
  Transmission Date: 20211014
  Serious: Yes (Death, Life-Threatening, Hospitalization, Disabling, Other)
  Sender: FDA-Public Use
  Company Number: None

PATIENT
  Age: 34 Year
  Sex: Male

DRUGS (5)
  1. GABAPENTIN 300 MG CAP [Suspect]
     Active Substance: GABAPENTIN
     Indication: DIABETES MELLITUS
     Dosage: ?          QUANTITY:1 CAPSULE(S);?
     Route: 048
     Dates: start: 20190401, end: 20191012
  2. GABAPENTIN 300 MG CAP [Suspect]
     Active Substance: GABAPENTIN
     Indication: SARCOMATOID CARCINOMA OF THE LUNG
     Dosage: ?          QUANTITY:1 CAPSULE(S);?
     Route: 048
     Dates: start: 20190401, end: 20191012
  3. GABAPENTIN 300 MG CAP [Suspect]
     Active Substance: GABAPENTIN
     Indication: PAIN
     Dosage: ?          QUANTITY:1 CAPSULE(S);?
     Route: 048
     Dates: start: 20190401, end: 20191012
  4. ALBUTEROL INHALER [Suspect]
     Active Substance: ALBUTEROL
     Indication: NEOPLASM MALIGNANT
     Dosage: ?          OTHER STRENGTH:MCG;QUANTITY:1 PUFF(S);?4 TIMES A DAY?
     Route: 048
     Dates: start: 20190501, end: 20191010
  5. GABAPENTIN 300 MG CAP [Suspect]
     Active Substance: GABAPENTIN
     Indication: LUNG CANCER METASTATIC
     Dosage: ?          QUANTITY:1 CAPSULE(S);?
     Route: 048
     Dates: start: 20190401, end: 20191012

REACTIONS (4)
  - Pulmonary embolism [None]
  - Hypoxia [None]
  - Refusal of treatment by patient [None]
  - Deep vein thrombosis [None]

NARRATIVE: CASE EVENT DATE: 20191002
